FAERS Safety Report 23664581 (Version 1)
Quarter: 2024Q1

REPORT INFORMATION
  Report Type: Spontaneous
  Country: CA (occurrence: CA)
  Receive Date: 20240322
  Receipt Date: 20240322
  Transmission Date: 20240410
  Serious: Yes (Other)
  Sender: FDA-Public Use
  Company Number: CA-TEVA-VS-3172090

PATIENT
  Age: 23 Year
  Sex: Female

DRUGS (5)
  1. METHOTREXATE SODIUM [Suspect]
     Active Substance: METHOTREXATE SODIUM
     Indication: Granulomatosis with polyangiitis
     Route: 065
  2. RUXIENCE [Concomitant]
     Active Substance: RITUXIMAB-PVVR
     Indication: Granulomatosis with polyangiitis
     Route: 042
  3. RUXIENCE [Concomitant]
     Active Substance: RITUXIMAB-PVVR
     Indication: Granulomatosis with polyangiitis
     Route: 042
  4. FOLIC ACID [Concomitant]
     Active Substance: FOLIC ACID
     Dosage: DOSAGE FORM IS NOT SPECIFIED
     Route: 065
  5. PREDNISONE [Concomitant]
     Active Substance: PREDNISONE
     Dosage: DOSAGE FORM IS NOT SPECIFIED
     Route: 065

REACTIONS (3)
  - Bronchial disorder [Unknown]
  - Off label use [Unknown]
  - Treatment failure [Unknown]
